FAERS Safety Report 6402556-6 (Version None)
Quarter: 2009Q4

REPORT INFORMATION
  Report Type: 
  Country: None (occurrence: None)
  Receive Date: 20091009
  Receipt Date: 20090930
  Transmission Date: 20100525
  Serious: Yes (Death)
  Sender: FDA-Public Use
  Company Number: ADR34652009

PATIENT
  Age: 72 Year
  Sex: Female

DRUGS (10)
  1. CIPROFLOXACIN [Suspect]
     Indication: LOWER RESPIRATORY TRACT INFECTION
     Dosage: 500 MG
     Dates: start: 20060428
  2. CANDESARTAN CILEXETIL [Concomitant]
  3. CEFACLOR [Concomitant]
  4. DIGOXIN [Concomitant]
  5. FLUTICASONE [Concomitant]
  6. FUROSEMIDE [Concomitant]
  7. TRIAMTERENE [Concomitant]
  8. ALBUTEROL [Concomitant]
  9. WARFARIN SODIUM [Concomitant]
  10. CEFACLOR [Concomitant]

REACTIONS (3)
  - HAEMOLYSIS [None]
  - JAUNDICE [None]
  - ORGAN FAILURE [None]
